FAERS Safety Report 12643279 (Version 1)
Quarter: 2016Q3

REPORT INFORMATION
  Report Type: Spontaneous
  Country: GB (occurrence: GB)
  Receive Date: 20160811
  Receipt Date: 20160811
  Transmission Date: 20161109
  Serious: Yes (Hospitalization)
  Sender: FDA-Public Use
  Company Number: GB-ACCORD-043132

PATIENT
  Age: 62 Year
  Sex: Female

DRUGS (6)
  1. GLYCERYL TRINITRATE [Concomitant]
     Active Substance: NITROGLYCERIN
     Dosage: 400 MICROG PRN
  2. ACETYLSALICYLIC ACID [Concomitant]
     Active Substance: ASPIRIN
     Dosage: 75 MG OD
  3. CIPROFLOXACIN/CIPROFLOXACIN HYDROCHLORIDE/CIPROFLOXACIN LACTATE [Interacting]
     Active Substance: CIPROFLOXACIN
     Indication: URINARY TRACT INFECTION
  4. NICORANDIL [Concomitant]
     Active Substance: NICORANDIL
     Dosage: 10 MG BD
  5. BISOPROLOL [Concomitant]
     Active Substance: BISOPROLOL
     Dosage: 5 MG OD
  6. SIMVASTATIN. [Suspect]
     Active Substance: SIMVASTATIN
     Indication: PRODUCT USED FOR UNKNOWN INDICATION
     Dosage: 40 MG NOCTE

REACTIONS (7)
  - Urine odour abnormal [None]
  - Haematuria [None]
  - Dysuria [None]
  - Hypocalcaemia [None]
  - Kidney angiomyolipoma [None]
  - Drug interaction [Unknown]
  - Rhabdomyolysis [Recovered/Resolved]
